FAERS Safety Report 4520643-4 (Version None)
Quarter: 2004Q4

REPORT INFORMATION
  Report Type: 
  Country: None (occurrence: None)
  Receive Date: 20041207
  Receipt Date: 20041201
  Transmission Date: 20050328
  Serious: Yes (Disabling)
  Sender: FDA-Public Use
  Company Number: US-MERCK-0412USA00214

PATIENT
  Age: 57 Year
  Sex: Female

DRUGS (2)
  1. ZOCOR [Suspect]
     Indication: BLOOD CHOLESTEROL INCREASED
     Route: 048
     Dates: start: 20041111, end: 20041129
  2. CENTRUM [Concomitant]
     Route: 065

REACTIONS (3)
  - DIFFICULTY IN WALKING [None]
  - HYPERSENSITIVITY [None]
  - PAIN [None]
